FAERS Safety Report 4789401-X (Version None)
Quarter: 2005Q3

REPORT INFORMATION
  Report Type: 
  Country: None (occurrence: None)
  Receive Date: 20050929
  Receipt Date: 20050728
  Transmission Date: 20060218
  Serious: No
  Sender: FDA-Public Use
  Company Number: 05P-163-0306919-00

PATIENT
  Age: 62 Year
  Sex: Female
  Weight: 48.5349 kg

DRUGS (5)
  1. HUMIRA [Suspect]
     Indication: RHEUMATOID ARTHRITIS
     Dosage: 40 MG, 1 IN 2 WK, SUBCUTANEOUS
     Route: 058
     Dates: start: 20050620
  2. ZYRTEC-D 12 HOUR [Concomitant]
  3. FLUTICASONE PROPIONATE [Concomitant]
  4. FOLIC ACID [Concomitant]
  5. DARVOCET [Concomitant]

REACTIONS (3)
  - DIARRHOEA [None]
  - INJECTION SITE IRRITATION [None]
  - NAUSEA [None]
